FAERS Safety Report 25538685 (Version 1)
Quarter: 2025Q3

REPORT INFORMATION
  Report Type: Spontaneous
  Country: US (occurrence: US)
  Receive Date: 20250710
  Receipt Date: 20250710
  Transmission Date: 20251020
  Serious: Yes (Hospitalization)
  Sender: SANOFI AVENTIS
  Company Number: US-SA-2025SA192274

PATIENT
  Sex: Female

DRUGS (21)
  1. DUPIXENT [Suspect]
     Active Substance: DUPILUMAB
     Indication: Vitamin B12 deficiency
     Dosage: 300 MG, QOW
     Route: 058
     Dates: end: 20250706
  2. ALENDRONATE [Concomitant]
     Active Substance: ALENDRONATE SODIUM
  3. ATORVASTATIN [Concomitant]
     Active Substance: ATORVASTATIN
  4. ENTRESTO [Concomitant]
     Active Substance: SACUBITRIL\VALSARTAN
  5. EZETIMIBE [Concomitant]
     Active Substance: EZETIMIBE
  6. FERATE [Concomitant]
  7. FOLIC ACID [Concomitant]
     Active Substance: FOLIC ACID
  8. FUROSEMIDE [Concomitant]
     Active Substance: FUROSEMIDE
  9. HYDROCODONE [Concomitant]
     Active Substance: HYDROCODONE
  10. LEVETIRACETAM [Concomitant]
     Active Substance: LEVETIRACETAM
  11. METOPROLOL [Concomitant]
     Active Substance: METOPROLOL
  12. PREGABALIN [Concomitant]
     Active Substance: PREGABALIN
  13. SPIRONOLACTONE [Concomitant]
     Active Substance: SPIRONOLACTONE
  14. TARCEVA [Concomitant]
     Active Substance: ERLOTINIB HYDROCHLORIDE
  15. VITAMIN B1 [Concomitant]
     Active Substance: THIAMINE HYDROCHLORIDE
  16. VITAMIN B6 [Concomitant]
     Active Substance: PYRIDOXINE HYDROCHLORIDE
  17. VITAMIN D3 [Concomitant]
     Active Substance: CHOLECALCIFEROL
  18. YUPELRI [Concomitant]
     Active Substance: REVEFENACIN
  19. ALBUTEROL SULFATE [Concomitant]
     Active Substance: ALBUTEROL SULFATE
  20. ASPIRIN [Concomitant]
     Active Substance: ASPIRIN
  21. FORMOTEROL FUMARATE [Concomitant]
     Active Substance: FORMOTEROL FUMARATE

REACTIONS (2)
  - Hospitalisation [Not Recovered/Not Resolved]
  - Product use in unapproved indication [Unknown]
